FAERS Safety Report 9720206 (Version 2)
Quarter: 2016Q2

REPORT INFORMATION
  Report Type: Report from Study
  Country: US (occurrence: US)
  Receive Date: 20131129
  Receipt Date: 20160527
  Transmission Date: 20160815
  Serious: Yes (Hospitalization, Other)
  Sender: FDA-Public Use
  Company Number: US-ROCHE-1309728

PATIENT
  Age: 59 Year
  Sex: Male

DRUGS (7)
  1. TRIBENZOR [Concomitant]
     Active Substance: AMLODIPINE BESYLATE\HYDROCHLOROTHIAZIDE\OLMESARTAN MEDOXOMIL
     Dosage: 40/10/25 MG
     Route: 048
  2. PREDNISONE. [Concomitant]
     Active Substance: PREDNISONE
     Route: 065
  3. REGLAN [Concomitant]
     Active Substance: METOCLOPRAMIDE HYDROCHLORIDE
     Dosage: AC AND HS
     Route: 048
  4. COMBIVENT RESPIMAT [Concomitant]
     Active Substance: ALBUTEROL SULFATE\IPRATROPIUM BROMIDE
  5. METHOTREXATE [Concomitant]
     Active Substance: METHOTREXATE
     Route: 065
  6. PREDNISONE. [Concomitant]
     Active Substance: PREDNISONE
     Dosage: AS DIRECTED PER MD
     Route: 048
  7. XOLAIR [Suspect]
     Active Substance: OMALIZUMAB
     Indication: ASTHMA
     Route: 058

REACTIONS (25)
  - Dyspnoea [Unknown]
  - Hiccups [Unknown]
  - Exercise tolerance decreased [Unknown]
  - Mucosal discolouration [Unknown]
  - Chest discomfort [Unknown]
  - Fatigue [Unknown]
  - Night sweats [Unknown]
  - Hypogonadism [Unknown]
  - Bronchial hyperreactivity [Unknown]
  - Blood pressure increased [Unknown]
  - Dysphonia [Unknown]
  - Gastrooesophageal reflux disease [Unknown]
  - Middle insomnia [Unknown]
  - Haemorrhage [Unknown]
  - Productive cough [Unknown]
  - Chills [Unknown]
  - Oedema mucosal [Unknown]
  - Upper-airway cough syndrome [Unknown]
  - Skull fracture [Unknown]
  - Wheezing [Unknown]
  - Dizziness [Unknown]
  - Drug ineffective [Unknown]
  - Asthma [Unknown]
  - Cough [Unknown]
  - Nasal oedema [Not Recovered/Not Resolved]

NARRATIVE: CASE EVENT DATE: 201306
